FAERS Safety Report 25493635 (Version 1)
Quarter: 2025Q2

REPORT INFORMATION
  Report Type: Spontaneous
  Country: CN (occurrence: CN)
  Receive Date: 20250630
  Receipt Date: 20250630
  Transmission Date: 20250717
  Serious: Yes (Hospitalization)
  Sender: MYLAN
  Company Number: CN-MYLANLABS-2025M1053310

PATIENT
  Age: 82 Year
  Sex: Female

DRUGS (7)
  1. LIPITOR [Suspect]
     Active Substance: ATORVASTATIN CALCIUM
     Indication: Arteriosclerosis
     Dosage: 20 MILLIGRAM, QD
     Dates: start: 20250502, end: 20250512
  2. LIPITOR [Suspect]
     Active Substance: ATORVASTATIN CALCIUM
     Indication: Lipids abnormal
  3. PIPERACILLIN AND TAZOBACTAM [Concomitant]
     Active Substance: PIPERACILLIN SODIUM\TAZOBACTAM SODIUM
     Indication: Pneumonia aspiration
     Dosage: 4.5 GRAM, TID
     Dates: start: 20250502, end: 20250515
  4. MANNITOL [Concomitant]
     Active Substance: MANNITOL
     Indication: Cerebral infarction
     Dosage: 125 MILLILITER, TID
     Dates: start: 20250503, end: 20250506
  5. HERBALS [Concomitant]
     Active Substance: HERBALS
     Indication: Cerebral infarction
     Dosage: 20 MILLILITER, QD
     Dates: start: 20250503, end: 20250515
  6. SODIUM CHLORIDE [Concomitant]
     Active Substance: SODIUM CHLORIDE
     Indication: Infection
     Dosage: 49 MILLILITER, Q8H (PIPERACILLIN SODIUM AND TAZOBACTAM + NS 49ML Q8H INTRAVENOUS DRIP)
  7. SODIUM CHLORIDE [Concomitant]
     Active Substance: SODIUM CHLORIDE
     Dosage: 250 MILLILITER, QD (XINGNAOJING + NS 250ML QD INTRAVENOUS DRIP)

REACTIONS (2)
  - Hepatic enzyme increased [Recovering/Resolving]
  - Incorrect route of product administration [Unknown]

NARRATIVE: CASE EVENT DATE: 20250502
